FAERS Safety Report 17213358 (Version 1)
Quarter: 2019Q4

REPORT INFORMATION
  Report Type: Spontaneous
  Country: US (occurrence: US)
  Receive Date: 20191230
  Receipt Date: 20191230
  Transmission Date: 20200122
  Serious: No
  Sender: FDA-Public Use
  Company Number: US-009507513-1912USA010639

PATIENT
  Sex: Male

DRUGS (3)
  1. PROVENTIL [Suspect]
     Active Substance: ALBUTEROL
     Indication: WHEEZING
     Dosage: UNK
     Dates: start: 201912, end: 20191213
  2. GUAIFENESIN. [Concomitant]
     Active Substance: GUAIFENESIN
     Dosage: UNK
  3. CODEINE [Concomitant]
     Active Substance: CODEINE
     Dosage: UNK

REACTIONS (3)
  - Product quality issue [Unknown]
  - Poor quality device used [Unknown]
  - Product dose omission [Unknown]

NARRATIVE: CASE EVENT DATE: 20191213
